FAERS Safety Report 16001582 (Version 2)
Quarter: 2019Q2

REPORT INFORMATION
  Report Type: Spontaneous
  Country: PL (occurrence: PL)
  Receive Date: 20190225
  Receipt Date: 20190402
  Transmission Date: 20190711
  Serious: Yes (Hospitalization)
  Sender: FDA-Public Use
  Company Number: PHHY2019PL043507

PATIENT
  Age: 27 Year
  Sex: Male

DRUGS (3)
  1. FLUNARIZINE [Suspect]
     Active Substance: FLUNARIZINE
     Indication: MIGRAINE
  2. SUMATRIPTAN. [Suspect]
     Active Substance: SUMATRIPTAN
     Indication: MIGRAINE
     Dosage: UNK
     Route: 065
  3. FLUNARIZINE [Suspect]
     Active Substance: FLUNARIZINE
     Indication: MIGRAINE
     Dosage: UNK
     Route: 065

REACTIONS (14)
  - Pruritus [Recovered/Resolved]
  - Rash papular [Unknown]
  - Neutrophil count increased [Unknown]
  - Monocyte count increased [Unknown]
  - Folliculitis [Recovered/Resolved]
  - Pityriasis lichenoides et varioliformis acuta [Recovered/Resolved]
  - Swelling [Recovered/Resolved]
  - Erythema [Unknown]
  - Blood glucose increased [Unknown]
  - Skin erosion [Recovered/Resolved]
  - Skin disorder [Recovered/Resolved]
  - Lymphopenia [Unknown]
  - Skin lesion [Recovered/Resolved]
  - Infection [Unknown]
